FAERS Safety Report 7957223-4 (Version None)
Quarter: 2011Q4

REPORT INFORMATION
  Report Type: 
  Country: None (occurrence: None)
  Receive Date: 20111205
  Receipt Date: 20111125
  Transmission Date: 20120403
  Serious: Yes (Hospitalization)
  Sender: FDA-Public Use
  Company Number: DE-UCBSA-043297

PATIENT
  Sex: Male

DRUGS (6)
  1. PHENYTOIN [Concomitant]
  2. LAMOTRIGINE [Concomitant]
  3. PHENYTOIN [Concomitant]
     Dosage: 100 MG
  4. KEPPRA [Suspect]
  5. LAMOTRIGINE [Concomitant]
     Dosage: 150 MG
  6. KEPPRA [Suspect]
     Dosage: AS USED: 1000 MG - 0 -1000 MG

REACTIONS (8)
  - HYPONATRAEMIA [None]
  - PNEUMONIA [None]
  - MONOPARESIS [None]
  - STATUS EPILEPTICUS [None]
  - ENCEPHALITIS [None]
  - DYSPHAGIA [None]
  - APHASIA [None]
  - URINARY TRACT INFECTION [None]
